FAERS Safety Report 19668743 (Version 1)
Quarter: 2021Q3

REPORT INFORMATION
  Report Type: Spontaneous
  Country: CH (occurrence: CH)
  Receive Date: 20210806
  Receipt Date: 20210806
  Transmission Date: 20211014
  Serious: Yes (Other)
  Sender: FDA-Public Use
  Company Number: CH-TEVA-2021-CH-1937682

PATIENT
  Age: 43 Year
  Sex: Female
  Weight: 73 kg

DRUGS (1)
  1. CIPROFLOXACIN MEPHA [Suspect]
     Active Substance: CIPROFLOXACIN
     Indication: CYSTITIS NONINFECTIVE
     Route: 065

REACTIONS (3)
  - Oedema peripheral [Recovered/Resolved]
  - Cardiac failure [Recovered/Resolved]
  - Localised oedema [Recovered/Resolved]

NARRATIVE: CASE EVENT DATE: 20201108
